FAERS Safety Report 12159121 (Version 1)
Quarter: 2016Q1

REPORT INFORMATION
  Report Type: Spontaneous
  Country: US (occurrence: None)
  Receive Date: 20160307
  Receipt Date: 20160307
  Transmission Date: 20160526
  Serious: Yes (Hospitalization)
  Sender: FDA-Public Use
  Company Number: None

PATIENT
  Age: 71 Year
  Sex: Male
  Weight: 80.74 kg

DRUGS (20)
  1. DULOXETINE HCL 30MG EC CAP [Suspect]
     Active Substance: DULOXETINE HYDROCHLORIDE
     Indication: NEUROPATHY PERIPHERAL
     Route: 048
     Dates: start: 20150606, end: 20160123
  2. COQ10 [Concomitant]
     Active Substance: UBIDECARENONE
  3. L-ARGININE [Concomitant]
     Active Substance: ARGININE
  4. DIPHENHYDRAMINE. [Concomitant]
     Active Substance: DIPHENHYDRAMINE
  5. LUBIPROSTONE [Concomitant]
     Active Substance: LUBIPROSTONE
  6. ZOLPIDEM TARTRATE. [Concomitant]
     Active Substance: ZOLPIDEM TARTRATE
  7. OMEPRAZOLE. [Concomitant]
     Active Substance: OMEPRAZOLE
  8. DOCUSATE NA [Concomitant]
     Active Substance: DOCUSATE
  9. SENNOSIDES. [Concomitant]
     Active Substance: SENNOSIDES
  10. L-PROSTATE [Concomitant]
  11. VITAMIN E [Concomitant]
     Active Substance: .ALPHA.-TOCOPHEROL
  12. FLAXSEED [Concomitant]
     Active Substance: FLAX SEED
  13. SIMVASTATIN. [Concomitant]
     Active Substance: SIMVASTATIN
  14. POLYETHYLENE GLYCOL 3350. [Concomitant]
     Active Substance: POLYETHYLENE GLYCOL 3350
  15. LUTEIN [Concomitant]
     Active Substance: LUTEIN
  16. VITAMIN D [Concomitant]
     Active Substance: CHOLECALCIFEROL
  17. LORAZEPAM. [Concomitant]
     Active Substance: LORAZEPAM
  18. ASPRIN [Concomitant]
     Active Substance: ASPIRIN
  19. L-LYSINE [Concomitant]
     Active Substance: LYSINE
  20. VITAMIN C [Concomitant]
     Active Substance: ASCORBIC ACID

REACTIONS (3)
  - Serotonin syndrome [None]
  - Cardiac arrest [None]
  - Drug interaction [None]

NARRATIVE: CASE EVENT DATE: 20151130
